FAERS Safety Report 8518516-5 (Version None)
Quarter: 2012Q3

REPORT INFORMATION
  Report Type: 
  Country: None (occurrence: None)
  Receive Date: 20120718
  Receipt Date: 20120711
  Transmission Date: 20120928
  Serious: Yes (Hospitalization)
  Sender: FDA-Public Use
  Company Number: GB-GLAXOSMITHKLINE-Z0013440A

PATIENT
  Sex: Female
  Weight: 98 kg

DRUGS (6)
  1. OFATUMUMAB [Suspect]
     Indication: DIFFUSE LARGE B-CELL LYMPHOMA REFRACTORY
     Dosage: 1000MG CYCLIC
     Route: 042
     Dates: start: 20111116
  2. CYTARABINE [Suspect]
     Indication: DIFFUSE LARGE B-CELL LYMPHOMA RECURRENT
     Dosage: 4GM2 EVERY 3 WEEKS
     Route: 042
     Dates: start: 20111118
  3. FLUCONAZOLE [Concomitant]
     Indication: INFECTION PROPHYLAXIS
     Dosage: 50MG PER DAY
     Route: 048
     Dates: start: 20111116
  4. COTRIM [Concomitant]
     Indication: INFECTION PROPHYLAXIS
     Dosage: 960MG THREE TIMES PER WEEK
     Route: 048
     Dates: start: 20111116
  5. CISPLATIN [Suspect]
     Indication: DIFFUSE LARGE B-CELL LYMPHOMA RECURRENT
     Dosage: 100MGM2 EVERY 3 WEEKS
     Route: 042
     Dates: start: 20111117
  6. DEXAMETHASONE [Suspect]
     Indication: DIFFUSE LARGE B-CELL LYMPHOMA RECURRENT
     Dosage: 40MG EVERY 3 WEEKS
     Route: 048
     Dates: start: 20111117

REACTIONS (1)
  - THROMBOSIS [None]
